FAERS Safety Report 19174931 (Version 2)
Quarter: 2021Q2

REPORT INFORMATION
  Report Type: Report from Study
  Country: FR (occurrence: FR)
  Receive Date: 20210423
  Receipt Date: 20210426
  Transmission Date: 20210717
  Serious: Yes (Hospitalization, Other)
  Sender: FDA-Public Use
  Company Number: FR-009507513-2104FRA003889

PATIENT
  Age: 75 Year
  Sex: Male
  Weight: 64 kg

DRUGS (16)
  1. PEMBROLIZUMAB. [Suspect]
     Active Substance: PEMBROLIZUMAB
     Dosage: 400 MILLIGRAM, EVERY 6 WEEKS
     Route: 042
     Dates: start: 20210316, end: 20210316
  2. TIOTROPIUM BROMIDE [Concomitant]
     Active Substance: TIOTROPIUM BROMIDE
     Indication: CHRONIC RESPIRATORY FAILURE
     Dosage: 18 MICROGRAM, QD
     Route: 048
     Dates: start: 200901
  3. AMPHOTERICIN B (+) CHLORHEXIDINE GLUCONATE (+) CHLOROBUTANOL (+) SODIU [Concomitant]
     Indication: GLOSSITIS
     Dosage: 1 DOSAGE FORM (UNIT NOT REPORTED), BID, FORMULATION: SOLUTION
     Route: 002
     Dates: start: 20210217
  4. XATRAL LP [Concomitant]
     Active Substance: ALFUZOSIN
     Indication: URINARY TRACT INFECTION
     Dosage: 10 MILLIGRAM, QD
     Route: 048
     Dates: start: 20210412
  5. LENVATINIB MESYLATE [Suspect]
     Active Substance: LENVATINIB MESYLATE
     Indication: HEPATOCELLULAR CARCINOMA
     Dosage: 12 MILLIGRAM, QD
     Route: 048
     Dates: start: 20210203, end: 20210405
  6. PEMBROLIZUMAB. [Suspect]
     Active Substance: PEMBROLIZUMAB
     Indication: HEPATOCELLULAR CARCINOMA
     Dosage: 400 MILLIGRAM, EVERY 6 WEEKS
     Route: 042
     Dates: start: 20210203, end: 20210203
  7. SERETIDE [Concomitant]
     Active Substance: FLUTICASONE PROPIONATE\SALMETEROL XINAFOATE
     Indication: CHRONIC RESPIRATORY FAILURE
     Dosage: 1 PUFF, BID, FORMULATION: INHALANT
     Route: 048
     Dates: start: 200901
  8. LYRICA [Concomitant]
     Active Substance: PREGABALIN
     Indication: SCIATICA
     Dosage: 50 MILLIGRAM, BID
     Route: 048
     Dates: start: 202002
  9. LENVATINIB MESYLATE [Suspect]
     Active Substance: LENVATINIB MESYLATE
     Dosage: 8 MILLIGRAM, QD
     Route: 048
     Dates: start: 20210406, end: 20210406
  10. GALVUS [Concomitant]
     Active Substance: VILDAGLIPTIN
     Indication: DIABETES MELLITUS
     Dosage: 50 MILLIGRAM, BID
     Route: 048
     Dates: start: 200501
  11. DAFALGAN CODEINE [Concomitant]
     Active Substance: ACETAMINOPHEN\CODEINE PHOSPHATE
     Indication: CHOLELITHIASIS
     Dosage: 2 TABLETS, TID
     Route: 048
     Dates: start: 20210309
  12. SPASFON [Concomitant]
     Indication: CHOLELITHIASIS
     Dosage: 2 TABLETS, QID
     Route: 048
     Dates: start: 20210309
  13. GLIMEPIRIDE. [Concomitant]
     Active Substance: GLIMEPIRIDE
     Indication: DIABETES MELLITUS
     Dosage: 2 MILLIGRAM, QD
     Route: 048
     Dates: start: 200501
  14. DOLIPRANE [Concomitant]
     Active Substance: ACETAMINOPHEN
     Indication: PAIN
     Dosage: 2 GRAM DAILY, PRN
     Route: 048
     Dates: start: 20201104
  15. INEXIUM (ESOMEPRAZOLE MAGNESIUM) [Concomitant]
     Active Substance: ESOMEPRAZOLE MAGNESIUM
     Indication: ABDOMINAL PAIN UPPER
     Dosage: 40 MILLIGRAM, BID
     Route: 048
     Dates: start: 20210217
  16. SUCRALFATE. [Concomitant]
     Active Substance: SUCRALFATE
     Indication: ABDOMINAL PAIN UPPER
     Dosage: 1 BAG, QID
     Route: 048
     Dates: start: 20210217

REACTIONS (3)
  - Cell death [Recovered/Resolved]
  - Urinary tract infection [Not Recovered/Not Resolved]
  - Blood bilirubin increased [Recovered/Resolved]

NARRATIVE: CASE EVENT DATE: 20210413
